FAERS Safety Report 25196006 (Version 1)
Quarter: 2025Q2

REPORT INFORMATION
  Report Type: Spontaneous
  Country: KR (occurrence: KR)
  Receive Date: 20250415
  Receipt Date: 20250415
  Transmission Date: 20250716
  Serious: Yes (Hospitalization)
  Sender: Steriscience PTE
  Company Number: KR-STERISCIENCE B.V.-2025-ST-000703

PATIENT
  Age: 43 Year
  Sex: Male

DRUGS (4)
  1. ROCURONIUM BROMIDE [Interacting]
     Active Substance: ROCURONIUM BROMIDE
     Indication: Neuromuscular blocking therapy
     Route: 065
  2. ROCURONIUM BROMIDE [Interacting]
     Active Substance: ROCURONIUM BROMIDE
     Route: 065
  3. REMIMAZOLAM [Interacting]
     Active Substance: REMIMAZOLAM
     Indication: Anaesthesia
     Route: 042
  4. REMIFENTANIL [Concomitant]
     Active Substance: REMIFENTANIL
     Indication: Anaesthesia
     Route: 042

REACTIONS (3)
  - Drug-disease interaction [Unknown]
  - Drug interaction [Unknown]
  - Therapeutic product effect decreased [Unknown]
